FAERS Safety Report 12738732 (Version 1)
Quarter: 2016Q3

REPORT INFORMATION
  Report Type: Spontaneous
  Country: JP (occurrence: JP)
  Receive Date: 20160912
  Receipt Date: 20160912
  Transmission Date: 20161109
  Serious: Yes (Other)
  Sender: FDA-Public Use
  Company Number: JP-TEVA-690717ISR

PATIENT

DRUGS (1)
  1. URSO [Suspect]
     Active Substance: URSODIOL
     Route: 048

REACTIONS (2)
  - Blood albumin decreased [Unknown]
  - Ascites [Unknown]
